FAERS Safety Report 10189003 (Version 1)
Quarter: 2014Q2

REPORT INFORMATION
  Report Type: Report from Study
  Country: BR (occurrence: BR)
  Receive Date: 20140522
  Receipt Date: 20140522
  Transmission Date: 20141212
  Serious: Yes (Hospitalization, Other)
  Sender: FDA-Public Use
  Company Number: PHHY2014BR057602

PATIENT
  Age: 46 Year
  Sex: Male

DRUGS (3)
  1. SANDOSTATIN LAR [Suspect]
     Indication: NEUROENDOCRINE TUMOUR
     Dosage: 30 MG, ONCE EVERY MONTH
     Dates: end: 201403
  2. MORFINE [Concomitant]
     Indication: PAIN
     Dosage: UNK UKN, AS REQUIRED
  3. TRAMADOL [Concomitant]
     Indication: PAIN
     Dosage: UNK UKN, EVERY 6 HOURS

REACTIONS (7)
  - Renal disorder [Not Recovered/Not Resolved]
  - Terminal state [Not Recovered/Not Resolved]
  - Swelling [Not Recovered/Not Resolved]
  - Metastases to bone [Not Recovered/Not Resolved]
  - Malignant neoplasm progression [Not Recovered/Not Resolved]
  - Weight increased [Not Recovered/Not Resolved]
  - Pain [Not Recovered/Not Resolved]
